FAERS Safety Report 6011337-7 (Version None)
Quarter: 2008Q4

REPORT INFORMATION
  Report Type: 
  Country: None (occurrence: None)
  Receive Date: 20081218
  Receipt Date: 20081209
  Transmission Date: 20090506
  Serious: Yes (Other)
  Sender: FDA-Public Use
  Company Number: DE-ROCHE-597370

PATIENT
  Sex: Female
  Weight: 80 kg

DRUGS (2)
  1. BONIVA [Suspect]
     Indication: OSTEOPOROSIS
     Dosage: DOSING AMOUNT 3.0MG/3.0ML
     Route: 065
  2. BONIVA [Suspect]
     Route: 048

REACTIONS (5)
  - FATIGUE [None]
  - HEADACHE [None]
  - HYPOAESTHESIA ORAL [None]
  - MALAISE [None]
  - NAUSEA [None]
